FAERS Safety Report 7476497-X (Version None)
Quarter: 2011Q2

REPORT INFORMATION
  Report Type: 
  Country: None (occurrence: None)
  Receive Date: 20110512
  Receipt Date: 20110422
  Transmission Date: 20111010
  Serious: No
  Sender: FDA-Public Use
  Company Number: US-B.I. PHARMACEUTICALS,INC./RIDGEFIELD-2011-BP-06870BP

PATIENT
  Sex: Female

DRUGS (7)
  1. PRADAXA [Suspect]
     Indication: ATRIAL FIBRILLATION
     Dosage: 300 MG
     Route: 048
     Dates: start: 20110217
  2. CARDIZEM [Concomitant]
     Indication: ATRIAL FIBRILLATION
     Dates: start: 20101101
  3. PREMARIN [Concomitant]
     Dates: start: 20101101
  4. AMBIEN [Concomitant]
  5. ASPIRIN [Concomitant]
  6. PRADAXA [Suspect]
     Indication: CARDIAC ABLATION
  7. MULTAQ [Concomitant]
     Indication: ATRIAL FIBRILLATION
     Route: 048
     Dates: start: 20100217

REACTIONS (4)
  - ABDOMINAL DISCOMFORT [None]
  - DYSPNOEA [None]
  - DYSPEPSIA [None]
  - CHEST DISCOMFORT [None]
